FAERS Safety Report 18272975 (Version 1)
Quarter: 2020Q3

REPORT INFORMATION
  Report Type: Spontaneous
  Country: CA (occurrence: CA)
  Receive Date: 20200916
  Receipt Date: 20200916
  Transmission Date: 20201103
  Serious: Yes (Other)
  Sender: FDA-Public Use
  Company Number: CA-SAMSUNG BIOEPIS-SB-2020-28536

PATIENT
  Sex: Male

DRUGS (1)
  1. ETANERCEPT [Suspect]
     Active Substance: ETANERCEPT
     Indication: PSORIATIC ARTHROPATHY
     Route: 058

REACTIONS (11)
  - Amyloidosis [Unknown]
  - Arthritis [Unknown]
  - Synovial disorder [Unknown]
  - Arthralgia [Unknown]
  - Infection [Unknown]
  - Renal vasculitis [Unknown]
  - Tinea manuum [Unknown]
  - Tenderness [Unknown]
  - Joint swelling [Unknown]
  - Necrosis [Unknown]
  - Synovitis [Unknown]
